FAERS Safety Report 8342973-0 (Version None)
Quarter: 2012Q2

REPORT INFORMATION
  Report Type: 
  Country: None (occurrence: None)
  Receive Date: 20120508
  Receipt Date: 20120423
  Transmission Date: 20120825
  Serious: Yes (Death)
  Sender: FDA-Public Use
  Company Number: PHHY2010KR23923

PATIENT
  Sex: Male
  Weight: 67 kg

DRUGS (1)
  1. EXJADE [Suspect]
     Indication: APLASTIC ANAEMIA
     Dosage: 20 MG/KG
     Route: 048
     Dates: start: 20070523, end: 20090702

REACTIONS (2)
  - DEATH [None]
  - DYSPEPSIA [None]
